FAERS Safety Report 5201918-2 (Version None)
Quarter: 2006Q4

REPORT INFORMATION
  Report Type: 
  Country: None (occurrence: None)
  Receive Date: 20061010
  Receipt Date: 20060503
  Transmission Date: 20070319
  Serious: Yes (Other)
  Sender: FDA-Public Use
  Company Number: 2006-05-0340

PATIENT
  Age: 45 Year
  Sex: Female
  Weight: 105.6881 kg

DRUGS (2)
  1. TEMODAR [Suspect]
     Indication: GLIOBLASTOMA MULTIFORME
     Dosage: 160 MG QD ORAL
     Route: 048
     Dates: start: 20060424, end: 20060501
  2. RADIATION THERAPY [Suspect]
     Indication: GLIOBLASTOMA MULTIFORME
     Dosage: X-RAY THERAPY
     Dates: start: 20051208

REACTIONS (1)
  - NEUTROPHIL COUNT DECREASED [None]
